FAERS Safety Report 9548562 (Version 3)
Quarter: 2014Q3

REPORT INFORMATION
  Report Type: Spontaneous
  Country: US (occurrence: US)
  Receive Date: 20130924
  Receipt Date: 20140725
  Transmission Date: 20150326
  Serious: Yes (Other)
  Sender: FDA-Public Use
  Company Number: US-PFIZER INC-2013271502

PATIENT
  Age: 54 Year
  Sex: Female
  Weight: 78.46 kg

DRUGS (7)
  1. WARFARIN [Concomitant]
     Active Substance: WARFARIN
     Dosage: 2.5 MG, UNK
  2. FISH OIL [Concomitant]
     Active Substance: FISH OIL
     Dosage: UNK
  3. ENOXAPARIN [Concomitant]
     Active Substance: ENOXAPARIN
     Dosage: 80 MG, UNK
  4. SUTENT [Suspect]
     Active Substance: SUNITINIB MALATE
     Indication: SOFT TISSUE SARCOMA
     Dosage: 25 MG, DAILY
     Route: 048
     Dates: start: 20130816
  5. TOPIRAMATE. [Concomitant]
     Active Substance: TOPIRAMATE
     Dosage: 25 MG, UNK
  6. LOVENOX [Concomitant]
     Active Substance: ENOXAPARIN SODIUM
  7. VENLAFAXINE HYDROCHLORIDE. [Concomitant]
     Active Substance: VENLAFAXINE HYDROCHLORIDE
     Dosage: 100 MG, UNK

REACTIONS (8)
  - Stomatitis [Unknown]
  - Skin papilloma [Unknown]
  - Pain in extremity [Unknown]
  - Rash [Unknown]
  - Dyspepsia [Unknown]
  - Alopecia [Unknown]
  - Off label use [Unknown]
  - Glossodynia [Unknown]

NARRATIVE: CASE EVENT DATE: 20130918
